FAERS Safety Report 8375283-6 (Version None)
Quarter: 2012Q2

REPORT INFORMATION
  Report Type: 
  Country: None (occurrence: None)
  Receive Date: 20120522
  Receipt Date: 20090908
  Transmission Date: 20120825
  Serious: No
  Sender: FDA-Public Use
  Company Number: US-BIOGENIDEC-2009BI028615

PATIENT
  Age: 53 Year
  Sex: Female

DRUGS (1)
  1. TYSABRI [Suspect]
     Indication: MULTIPLE SCLEROSIS
     Route: 042
     Dates: start: 20090902, end: 20090902

REACTIONS (8)
  - HEADACHE [None]
  - FATIGUE [None]
  - DRY MOUTH [None]
  - MOBILITY DECREASED [None]
  - ASTHENIA [None]
  - DIZZINESS [None]
  - FALL [None]
  - NAUSEA [None]
